FAERS Safety Report 5903879-7 (Version None)
Quarter: 2008Q3

REPORT INFORMATION
  Report Type: 
  Country: None (occurrence: None)
  Receive Date: 20080919
  Receipt Date: 20080616
  Transmission Date: 20090109
  Serious: No
  Sender: FDA-Public Use
  Company Number: US-WYE-H04551908

PATIENT
  Age: 75 Year
  Sex: Female
  Weight: 70.82 kg

DRUGS (4)
  1. PRISTIQ [Suspect]
     Indication: DEPRESSION
     Dosage: 50 MG 1X PER 1 DAY, ORAL
     Route: 048
     Dates: start: 20080604, end: 20080614
  2. HYDROXYZINE [Concomitant]
  3. MULTI-VITAMINS [Concomitant]
  4. LIPITOR [Concomitant]

REACTIONS (3)
  - DECREASED APPETITE [None]
  - DRY MOUTH [None]
  - DYSGEUSIA [None]
